FAERS Safety Report 24265323 (Version 1)
Quarter: 2024Q3

REPORT INFORMATION
  Report Type: Spontaneous
  Country: US (occurrence: US)
  Receive Date: 20240829
  Receipt Date: 20240829
  Transmission Date: 20241017
  Serious: No
  Sender: GALDERMA
  Company Number: US-GALDERMA-US2024000425

PATIENT

DRUGS (3)
  1. CLOBEX [Suspect]
     Active Substance: CLOBETASOL PROPIONATE
     Indication: Psoriasis
     Dosage: 1 DOSAGE FORM
     Route: 061
  2. HYDROCORTISONE [Concomitant]
     Active Substance: HYDROCORTISONE\HYDROCORTISONE ACETATE
     Indication: Psoriasis
     Dosage: 1 DOSAGE FORM
     Route: 065
  3. ASPIRIN [Concomitant]
     Active Substance: ASPIRIN
     Indication: Product used for unknown indication
     Route: 065

REACTIONS (3)
  - Skin irritation [Unknown]
  - Skin fissures [Unknown]
  - Skin haemorrhage [Unknown]
